FAERS Safety Report 23479683 (Version 2)
Quarter: 2025Q1

REPORT INFORMATION
  Report Type: Spontaneous
  Country: US (occurrence: US)
  Receive Date: 20240205
  Receipt Date: 20250226
  Transmission Date: 20250408
  Serious: No
  Sender: UCB
  Company Number: US-UCBSA-2023012782

PATIENT

DRUGS (1)
  1. KEPPRA [Suspect]
     Active Substance: LEVETIRACETAM
     Indication: Product used for unknown indication

REACTIONS (6)
  - Dry mouth [Unknown]
  - Feeling abnormal [Unknown]
  - Irritability [Unknown]
  - Pain in extremity [Unknown]
  - Gingival pain [Unknown]
  - Gingival bleeding [Unknown]
